FAERS Safety Report 4626593-7 (Version None)
Quarter: 2005Q1

REPORT INFORMATION
  Report Type: 
  Country: None (occurrence: None)
  Receive Date: 20050330
  Receipt Date: 20050318
  Transmission Date: 20050727
  Serious: Yes (Hospitalization)
  Sender: FDA-Public Use
  Company Number: MK200503-0278-1

PATIENT
  Age: 72 Year
  Sex: Female

DRUGS (2)
  1. HYDROMORPHONE HCL [Suspect]
     Indication: PAIN
     Dosage: 1MG, 2-4 TIMES DAILY
     Dates: start: 20050224, end: 20050224
  2. HYDROCODONE BITARTRATE + ACETAMINOPHEN [Concomitant]

REACTIONS (5)
  - BODY TEMPERATURE INCREASED [None]
  - MOVEMENT DISORDER [None]
  - NEUROPATHY [None]
  - PARALYSIS [None]
  - WHITE BLOOD CELL COUNT INCREASED [None]
